FAERS Safety Report 9355936 (Version 1)
Quarter: 2013Q2

REPORT INFORMATION
  Report Type: Report from Study
  Country: NL (occurrence: NL)
  Receive Date: 20130619
  Receipt Date: 20130619
  Transmission Date: 20140414
  Serious: Yes (Other)
  Sender: FDA-Public Use
  Company Number: NL-MYLANLABS-2013S1012556

PATIENT
  Age: 12 Year
  Sex: Male

DRUGS (2)
  1. VORICONAZOLE [Suspect]
     Indication: ANTIFUNGAL PROPHYLAXIS
     Dosage: EITHER 150MG OR 200MG TWICE DAILY
     Route: 048
  2. METHOTREXATE [Interacting]
     Indication: ACUTE LYMPHOCYTIC LEUKAEMIA
     Dosage: LOW DOSE: 20-30 MG/M2/WEEK
     Route: 065

REACTIONS (3)
  - Cheilitis [Unknown]
  - Photosensitivity reaction [Unknown]
  - Drug interaction [Unknown]
